FAERS Safety Report 4377291-9 (Version None)
Quarter: 2004Q2

REPORT INFORMATION
  Report Type: 
  Country: None (occurrence: None)
  Receive Date: 20040614
  Receipt Date: 20040614
  Transmission Date: 20050107
  Serious: Yes (Hospitalization)
  Sender: FDA-Public Use
  Company Number: None

PATIENT
  Age: 72 Year
  Sex: Female
  Weight: 53.0709 kg

DRUGS (10)
  1. GATIFLOXACIN 200 MG [Suspect]
     Indication: URINARY TRACT INFECTION
     Dosage: 200 MG QD ORAL
     Route: 048
     Dates: start: 20040421, end: 20040428
  2. OMEPRAZOLE [Concomitant]
  3. RABEPRAZOLE SODIUM [Concomitant]
  4. NIFEDIPINE [Concomitant]
  5. PREMARIN [Concomitant]
  6. TOPROL-XL [Concomitant]
  7. GABAPENTIN [Concomitant]
  8. LISINOPRIL [Concomitant]
  9. CETIRIZINE HCL [Concomitant]
  10. HYDROCHLOROTHIAZIDE [Concomitant]

REACTIONS (10)
  - BIOPSY KIDNEY ABNORMAL [None]
  - CHILLS [None]
  - COUGH [None]
  - FATIGUE [None]
  - MYALGIA [None]
  - NEPHRITIS INTERSTITIAL [None]
  - PAIN [None]
  - RENAL FAILURE ACUTE [None]
  - RENAL SCAN ABNORMAL [None]
  - WEIGHT DECREASED [None]
